FAERS Safety Report 9508783 (Version 1)
Quarter: 2013Q3

REPORT INFORMATION
  Report Type: Spontaneous
  Country: US (occurrence: US)
  Receive Date: 20130909
  Receipt Date: 20130909
  Transmission Date: 20140515
  Serious: No
  Sender: FDA-Public Use
  Company Number: US-BRISTOL-MYERS SQUIBB COMPANY-19099928

PATIENT
  Age: 73 Year
  Sex: Female
  Weight: 70.29 kg

DRUGS (6)
  1. ABILIFY [Suspect]
     Dates: start: 20130624
  2. LISINOPRIL [Concomitant]
  3. CARBIDOPA [Concomitant]
     Indication: RESTLESS LEGS SYNDROME
  4. SIMVASTATIN [Concomitant]
  5. VITAMINS [Concomitant]
  6. PAXIL [Concomitant]

REACTIONS (4)
  - Drug dose omission [Unknown]
  - Nervousness [Unknown]
  - Nausea [Unknown]
  - Feeling abnormal [Unknown]
